FAERS Safety Report 8084763-2 (Version None)
Quarter: 2012Q1

REPORT INFORMATION
  Report Type: 
  Country: None (occurrence: None)
  Receive Date: 20120128
  Receipt Date: 20110317
  Transmission Date: 20120608
  Serious: No
  Sender: FDA-Public Use
  Company Number: US-ABBOTT-11P-163-0712422-00

PATIENT
  Age: 29 Year
  Sex: Female

DRUGS (2)
  1. MIRENA [Concomitant]
     Indication: PRODUCT USED FOR UNKNOWN INDICATION
     Dosage: INTRAUTERINE DEVICE
  2. HUMIRA [Suspect]
     Indication: CROHN'S DISEASE
     Dates: start: 20101001, end: 20110224

REACTIONS (6)
  - NAUSEA [None]
  - VOMITING [None]
  - URTICARIA [None]
  - ABDOMINAL PAIN [None]
  - CROHN'S DISEASE [None]
  - FATIGUE [None]
